FAERS Safety Report 10695313 (Version 1)
Quarter: 2015Q1

REPORT INFORMATION
  Report Type: Other
  Country: GB (occurrence: GB)
  Receive Date: 20150107
  Receipt Date: 20150107
  Transmission Date: 20150721
  Serious: Yes (Hospitalization, Other)
  Sender: FDA-Public Use
  Company Number: GB-MYLANLABS-2015M1000058

PATIENT

DRUGS (9)
  1. DOXYCYCLINE. [Suspect]
     Active Substance: DOXYCYCLINE
     Dosage: 200MG FIRST DAY, 100MG FOR NEXT 6 DAYS
     Route: 048
     Dates: start: 20141217
  2. ACETAMINOPHEN AND CODEINE [Concomitant]
     Active Substance: ACETAMINOPHEN\CODEINE PHOSPHATE
  3. GABAPENTIN. [Concomitant]
     Active Substance: GABAPENTIN
  4. GLICLAZIDE [Concomitant]
     Active Substance: GLICLAZIDE
  5. LOSARTAN AND HYDROCHLOROTHIAZIDE [Concomitant]
     Active Substance: HYDROCHLOROTHIAZIDE\LOSARTAN POTASSIUM
  6. NAPROXEN. [Concomitant]
     Active Substance: NAPROXEN
  7. DOXYCYCLINE. [Suspect]
     Active Substance: DOXYCYCLINE
     Indication: RESPIRATORY TRACT INFECTION
     Dosage: 200MG FIRST DAY, 100MG FOR NEXT 6 DAYS
     Route: 048
     Dates: start: 20141216, end: 20141216
  8. VENLAFAXINE [Concomitant]
     Active Substance: VENLAFAXINE HYDROCHLORIDE
  9. QUININE [Concomitant]
     Active Substance: QUININE

REACTIONS (10)
  - Muscular weakness [Recovering/Resolving]
  - Chest pain [Recovering/Resolving]
  - Pain in extremity [Recovering/Resolving]
  - Anxiety [Recovering/Resolving]
  - Tearfulness [Recovering/Resolving]
  - Musculoskeletal pain [Recovering/Resolving]
  - Amnesia [Recovering/Resolving]
  - Confusional state [Recovering/Resolving]
  - Dyspnoea [Recovering/Resolving]
  - Angina pectoris [Unknown]

NARRATIVE: CASE EVENT DATE: 20141217
